FAERS Safety Report 24390444 (Version 5)
Quarter: 2025Q1

REPORT INFORMATION
  Report Type: Report from Study
  Country: CA (occurrence: CA)
  Receive Date: 20241003
  Receipt Date: 20250310
  Transmission Date: 20250409
  Serious: Yes (Other)
  Sender: TAKEDA
  Company Number: CA-TAKEDA-2023TUS025230

PATIENT
  Sex: Male

DRUGS (12)
  1. VEDOLIZUMAB [Suspect]
     Active Substance: VEDOLIZUMAB
     Indication: Colitis ulcerative
  2. VEDOLIZUMAB [Suspect]
     Active Substance: VEDOLIZUMAB
  3. VEDOLIZUMAB [Suspect]
     Active Substance: VEDOLIZUMAB
  4. VEDOLIZUMAB [Suspect]
     Active Substance: VEDOLIZUMAB
  5. VEDOLIZUMAB [Suspect]
     Active Substance: VEDOLIZUMAB
  6. XARELTO [Concomitant]
     Active Substance: RIVAROXABAN
     Indication: Anticoagulant therapy
  7. VITAMIN D [Concomitant]
     Active Substance: VITAMIN D NOS
  8. TRAMADOL [Concomitant]
     Active Substance: TRAMADOL
  9. TRAMADOL HYDROCHLORIDE [Concomitant]
     Active Substance: TRAMADOL HYDROCHLORIDE
     Dosage: UNK UNK, BID
  10. ZOPICLONE [Concomitant]
     Active Substance: ZOPICLONE
  11. PREDNISONE [Concomitant]
     Active Substance: PREDNISONE
  12. Salofalk [Concomitant]
     Dosage: 2 GRAM, BID

REACTIONS (2)
  - Colitis ulcerative [Unknown]
  - Coeliac disease [Unknown]
